FAERS Safety Report 11815013 (Version 1)
Quarter: 2015Q4

REPORT INFORMATION
  Report Type: Spontaneous
  Country: US (occurrence: US)
  Receive Date: 20151209
  Receipt Date: 20151209
  Transmission Date: 20160305
  Serious: No
  Sender: FDA-Public Use
  Company Number: US-SA-2015SA151500

PATIENT
  Age: 67 Year
  Sex: Female

DRUGS (2)
  1. TOUJEO [Suspect]
     Active Substance: INSULIN GLARGINE
     Indication: DIABETES MELLITUS
     Dosage: DOSE:10 UNIT(S)
     Route: 065
     Dates: start: 20150918, end: 20150924
  2. SOLOSTAR [Concomitant]
     Active Substance: DEVICE
     Dates: start: 20150918, end: 20150924

REACTIONS (3)
  - Erythema [Unknown]
  - Rash [Unknown]
  - Skin mass [Unknown]
